FAERS Safety Report 25057952 (Version 1)
Quarter: 2025Q1

REPORT INFORMATION
  Report Type: Spontaneous
  Country: CN (occurrence: CN)
  Receive Date: 20250310
  Receipt Date: 20250310
  Transmission Date: 20250408
  Serious: Yes (Hospitalization)
  Sender: Norvium Bioscience
  Company Number: CN-Norvium Bioscience LLC-079930

PATIENT
  Age: 15 Year
  Sex: Male

DRUGS (2)
  1. OLANZAPINE [Suspect]
     Active Substance: OLANZAPINE
     Indication: Psychotic symptom
  2. OLANZAPINE [Suspect]
     Active Substance: OLANZAPINE
     Indication: Agitation

REACTIONS (1)
  - Catatonia [Recovered/Resolved]
